FAERS Safety Report 4353845-0 (Version None)
Quarter: 2004Q2

REPORT INFORMATION
  Report Type: 
  Country: None (occurrence: None)
  Receive Date: 20040503
  Receipt Date: 20040423
  Transmission Date: 20050107
  Serious: Yes (Hospitalization, Other)
  Sender: FDA-Public Use
  Company Number: FR-JNJFOC-20040303034

PATIENT
  Age: 56 Year
  Sex: Female
  Weight: 63 kg

DRUGS (5)
  1. REMICADE [Suspect]
     Indication: CROHN'S DISEASE
     Dosage: 300 MG, INTRAVENOUS
     Route: 042
     Dates: start: 20031008, end: 20040114
  2. REMICADE [Suspect]
     Indication: FISTULA
     Dosage: 300 MG, INTRAVENOUS
     Route: 042
     Dates: start: 20031008, end: 20040114
  3. SOLUPRED 9PREDNISOLONE SODIUM SULFOBENZOATE) [Concomitant]
  4. PENTASA [Concomitant]
  5. AZATHIOPRINE [Concomitant]

REACTIONS (6)
  - ARTHRALGIA [None]
  - ASTHENIA [None]
  - HEPATITIS [None]
  - LUPUS-LIKE SYNDROME [None]
  - PERICARDITIS [None]
  - PLEURAL EFFUSION [None]
